FAERS Safety Report 6152319-4 (Version None)
Quarter: 2009Q2

REPORT INFORMATION
  Report Type: 
  Country: None (occurrence: None)
  Receive Date: 20090413
  Receipt Date: 20070803
  Transmission Date: 20091009
  Serious: Yes (Hospitalization)
  Sender: FDA-Public Use
  Company Number: US-ASTRAZENECA-2006UW23354

PATIENT
  Age: 16399 Day
  Sex: Female
  Weight: 142.4 kg

DRUGS (38)
  1. SEROQUEL [Suspect]
     Indication: BIPOLAR DISORDER
     Route: 048
     Dates: start: 20000101
  2. SEROQUEL [Suspect]
     Indication: DEPRESSION
     Route: 048
     Dates: start: 20000101
  3. SEROQUEL [Suspect]
     Indication: PANIC DISORDER
     Route: 048
     Dates: start: 20000101
  4. SEROQUEL [Suspect]
     Dosage: 25 - 1200 MG
     Route: 048
  5. SEROQUEL [Suspect]
     Dosage: 25 - 1200 MG
     Route: 048
  6. SEROQUEL [Suspect]
     Dosage: 25 - 1200 MG
     Route: 048
  7. ZYPREXA [Suspect]
     Dates: end: 20040101
  8. ABILIFY [Concomitant]
  9. EFFEXOR [Concomitant]
     Route: 048
  10. MICARDIS [Concomitant]
  11. KLOR-CON [Concomitant]
  12. FUROSEMIDE [Concomitant]
  13. ATENOLOL [Concomitant]
  14. GLUCOPHAGE [Concomitant]
  15. AMARYL [Concomitant]
  16. ULTRAM [Concomitant]
  17. IBUPROFEN [Concomitant]
  18. LORTAB [Concomitant]
  19. SYNTHROID [Concomitant]
  20. ZONEGRAN [Concomitant]
  21. XANAX [Concomitant]
  22. PROVENTIL [Concomitant]
  23. ADVAIR DISKUS 100/50 [Concomitant]
  24. METFORMIN [Concomitant]
  25. AMBIEN [Concomitant]
  26. ACTOS [Concomitant]
  27. LORAZEPAM [Concomitant]
  28. ASPIRIN [Concomitant]
  29. PROPAFENONE HCL [Concomitant]
  30. NEXIUM [Concomitant]
  31. VERAPAMIL [Concomitant]
  32. PROZAC [Concomitant]
  33. TYLENOL [Concomitant]
  34. LANTUS [Concomitant]
  35. HYDROXYZINE HYDROCHLORIDE [Concomitant]
  36. HALDOL [Concomitant]
  37. BENADRYL [Concomitant]
  38. TOPAMAX [Concomitant]

REACTIONS (34)
  - ACUTE SINUSITIS [None]
  - ATRIAL FLUTTER [None]
  - BACK INJURY [None]
  - BACK PAIN [None]
  - BLOOD CHOLESTEROL INCREASED [None]
  - BLOOD TRIGLYCERIDES INCREASED [None]
  - BRONCHITIS [None]
  - BURNING SENSATION [None]
  - DIABETES MELLITUS [None]
  - DIZZINESS [None]
  - DYSPNOEA [None]
  - EAR INFECTION [None]
  - FATIGUE [None]
  - FOOT FRACTURE [None]
  - GASTROOESOPHAGEAL REFLUX DISEASE [None]
  - GINGIVAL SWELLING [None]
  - HYPERLIPIDAEMIA [None]
  - HYPOAESTHESIA [None]
  - HYPOGLYCAEMIA [None]
  - HYPOTENSION [None]
  - HYPOVOLAEMIA [None]
  - INSOMNIA [None]
  - JOINT DISLOCATION [None]
  - MALAISE [None]
  - MUSCULOSKELETAL PAIN [None]
  - MYALGIA [None]
  - NASOPHARYNGITIS [None]
  - NAUSEA [None]
  - NECK PAIN [None]
  - NEUROPATHY PERIPHERAL [None]
  - NON-CARDIAC CHEST PAIN [None]
  - PAIN IN EXTREMITY [None]
  - SUPRAVENTRICULAR TACHYCARDIA [None]
  - TYPE 2 DIABETES MELLITUS [None]
